FAERS Safety Report 9334868 (Version 1)
Quarter: 2013Q2

REPORT INFORMATION
  Report Type: Spontaneous
  Country: US (occurrence: US)
  Receive Date: 20130606
  Receipt Date: 20130606
  Transmission Date: 20140414
  Serious: No
  Sender: FDA-Public Use
  Company Number: US-AMGEN-USASP2013026840

PATIENT
  Age: 79 Year
  Sex: Female
  Weight: 65.76 kg

DRUGS (4)
  1. PROLIA [Suspect]
     Indication: OSTEOPOROSIS
     Dosage: UNK
  2. VITAMIN D                          /00107901/ [Concomitant]
  3. PREDNISONE [Concomitant]
  4. DEPOMEDROL [Concomitant]

REACTIONS (2)
  - Rash erythematous [Unknown]
  - Contusion [Unknown]
